FAERS Safety Report 19818089 (Version 5)
Quarter: 2024Q4

REPORT INFORMATION
  Report Type: Report from Study
  Country: RU (occurrence: RU)
  Receive Date: 20210911
  Receipt Date: 20241211
  Transmission Date: 20250114
  Serious: Yes (Hospitalization)
  Sender: ROCHE
  Company Number: RU-ROCHE-2905644

PATIENT
  Age: 37 Year
  Sex: Female
  Weight: 84.0 kg

DRUGS (20)
  1. OCRELIZUMAB [Suspect]
     Active Substance: OCRELIZUMAB
     Indication: Relapsing-remitting multiple sclerosis
     Dosage: ON 05/MAR/2021, DOSE LAST STUDY DRUG ADMIN PRIOR AE AND SAE WAS 600 MG. TOTAL VOLUME PRIOR SAE WAS 5
     Route: 042
     Dates: start: 20200228, end: 20200228
  2. OCRELIZUMAB [Suspect]
     Active Substance: OCRELIZUMAB
     Dosage: NEXT DOSE: 05/MAR/2021,
     Route: 042
     Dates: start: 20200828, end: 20200828
  3. OCRELIZUMAB [Suspect]
     Active Substance: OCRELIZUMAB
     Dosage: NEXT DOSE: 05/MAR/2021,
     Route: 042
     Dates: start: 20220411, end: 20220411
  4. OCRELIZUMAB [Suspect]
     Active Substance: OCRELIZUMAB
     Dosage: NEXT DOSE: 05/MAR/2021,
     Route: 042
     Dates: start: 20221028, end: 20221028
  5. OCRELIZUMAB [Suspect]
     Active Substance: OCRELIZUMAB
     Route: 042
     Dates: start: 20230428, end: 20230428
  6. OCRELIZUMAB [Suspect]
     Active Substance: OCRELIZUMAB
     Route: 042
     Dates: start: 20240508, end: 20240508
  7. OCRELIZUMAB [Suspect]
     Active Substance: OCRELIZUMAB
     Route: 042
     Dates: start: 20231103, end: 20231103
  8. OCRELIZUMAB [Suspect]
     Active Substance: OCRELIZUMAB
     Route: 042
     Dates: start: 20210903, end: 20210903
  9. OCRELIZUMAB [Suspect]
     Active Substance: OCRELIZUMAB
     Route: 042
     Dates: start: 20210305, end: 20210305
  10. NATALIZUMAB [Concomitant]
     Active Substance: NATALIZUMAB
  11. INSULIN DEGLUDEC [Concomitant]
     Active Substance: INSULIN DEGLUDEC
     Dosage: MEDICATION DOSE 30 U (UNIT)? FREQUENCY TEXT:QD
     Route: 058
  12. INSULIN LISPRO [Concomitant]
     Active Substance: INSULIN LISPRO
     Dosage: MEDICATION DOSE 20 U (UNIT)? FREQUENCY TEXT:TID
     Route: 058
  13. CHOLECALCIFEROL [Concomitant]
     Active Substance: CHOLECALCIFEROL
     Dosage: MEDICATION DOSE 2000 U (UNIT)? FREQUENCY TEXT:QD
     Route: 048
     Dates: start: 20200901
  14. CHLOROPYRAMINE [Concomitant]
     Active Substance: CHLOROPYRAMINE
     Dosage: FREQUENCY TEXT:ONCE BEFORE INFUSION
     Route: 042
     Dates: start: 20210903, end: 20210903
  15. CHLOROPYRAMINE [Concomitant]
     Active Substance: CHLOROPYRAMINE
     Dosage: FREQUENCY TEXT:ONCE BEFORE INFUSION
     Route: 042
     Dates: start: 20220411, end: 20220411
  16. CHLOROPYRAMINE [Concomitant]
     Active Substance: CHLOROPYRAMINE
     Dosage: FREQUENCY TEXT:ONCE BEFORE INFUSION
     Route: 042
     Dates: start: 20221028, end: 20221028
  17. METHYLPREDNISOLONE [Concomitant]
     Active Substance: METHYLPREDNISOLONE
     Dosage: FREQUENCY TEXT:ONCE BEFORE INFUSION
     Route: 042
     Dates: start: 20210903, end: 20210903
  18. METHYLPREDNISOLONE [Concomitant]
     Active Substance: METHYLPREDNISOLONE
     Dosage: FREQUENCY TEXT:ONCE BEFORE INFUSION
     Route: 042
     Dates: start: 20220411, end: 20220411
  19. METHYLPREDNISOLONE [Concomitant]
     Active Substance: METHYLPREDNISOLONE
     Dosage: FREQUENCY TEXT:ONCE BEFORE INFUSION
     Route: 042
     Dates: start: 20221028, end: 20221028
  20. CHLOROPYRAMINE [Concomitant]
     Active Substance: CHLOROPYRAMINE

REACTIONS (2)
  - Bartholin^s abscess [Recovered/Resolved]
  - Cervical polyp [Not Recovered/Not Resolved]

NARRATIVE: CASE EVENT DATE: 20210811
